FAERS Safety Report 7739347-X (Version None)
Quarter: 2011Q3

REPORT INFORMATION
  Report Type: 
  Country: None (occurrence: None)
  Receive Date: 20110909
  Receipt Date: 20110830
  Transmission Date: 20111222
  Serious: Yes (Other)
  Sender: FDA-Public Use
  Company Number: US-UCBSA-040497

PATIENT
  Sex: Female

DRUGS (4)
  1. PRENATAL VITAMINS [Concomitant]
     Indication: PREGNANCY
     Route: 048
  2. LEVOXYL [Concomitant]
     Indication: HYPOTHYROIDISM
     Dosage: 75 MICROGRAM
     Route: 048
  3. KEPPRA [Suspect]
     Indication: EPILEPSY
     Dosage: 2500 MG
  4. FOLIC ACID [Concomitant]
     Indication: PREGNANCY
     Dosage: 2 MG
     Route: 048

REACTIONS (3)
  - MATERNAL EXPOSURE DURING PREGNANCY [None]
  - CAESAREAN SECTION [None]
  - DRUG ABUSE [None]
